FAERS Safety Report 6899121-3 (Version None)
Quarter: 2010Q3

REPORT INFORMATION
  Report Type: 
  Country: None (occurrence: None)
  Receive Date: 20100802
  Receipt Date: 20080108
  Transmission Date: 20110219
  Serious: No
  Sender: FDA-Public Use
  Company Number: US-PFIZER INC-2008002143

PATIENT
  Sex: Male
  Weight: 114.3 kg

DRUGS (38)
  1. LYRICA [Suspect]
     Indication: PAIN
  2. ADDERALL 10 [Concomitant]
  3. ACETYLSALICYLIC ACID SRT [Concomitant]
  4. ACETYLSALICYLIC ACID SRT [Concomitant]
  5. CELEBREX [Concomitant]
  6. CELEBREX [Concomitant]
  7. LIPITOR [Concomitant]
  8. LIPITOR [Concomitant]
  9. CELEXA [Concomitant]
  10. CELEXA [Concomitant]
  11. CELEXA [Concomitant]
  12. CELEXA [Concomitant]
  13. CITRUCEL [Concomitant]
  14. CITRUCEL [Concomitant]
  15. VALSARTAN [Concomitant]
  16. VALSARTAN [Concomitant]
  17. TAMSULOSIN HYDROCHLORIDE [Concomitant]
  18. TAMSULOSIN HYDROCHLORIDE [Concomitant]
  19. FOLIC ACID [Concomitant]
  20. FOLIC ACID [Concomitant]
  21. ALL OTHER THERAPEUTIC PRODUCTS [Concomitant]
  22. ALL OTHER THERAPEUTIC PRODUCTS [Concomitant]
  23. GLUCOPHAGE [Concomitant]
  24. GLUCOPHAGE [Concomitant]
  25. LOVAZA [Concomitant]
  26. LOVAZA [Concomitant]
  27. OS-CAL D [Concomitant]
  28. OS-CAL D [Concomitant]
  29. PRILOSEC [Concomitant]
  30. PRILOSEC [Concomitant]
  31. TOPROL-XL [Concomitant]
  32. TOPROL-XL [Concomitant]
  33. VITAMIN B6 [Concomitant]
  34. VITAMIN B6 [Concomitant]
  35. VITAMIN B-12 [Concomitant]
  36. VITAMIN B-12 [Concomitant]
  37. WELLBUTRIN [Concomitant]
  38. CENTRUM [Concomitant]

REACTIONS (1)
  - VISUAL ACUITY REDUCED [None]
